FAERS Safety Report 5479806-6 (Version None)
Quarter: 2007Q4

REPORT INFORMATION
  Report Type: 
  Country: None (occurrence: None)
  Receive Date: 20071008
  Receipt Date: 20071008
  Transmission Date: 20080405
  Serious: Yes (Other)
  Sender: FDA-Public Use
  Company Number: US-SHR-US-2007-027603

PATIENT
  Age: 10 Week

DRUGS (1)
  1. MIRENA [Suspect]

REACTIONS (1)
  - WEIGHT DECREASE NEONATAL [None]
